FAERS Safety Report 4677242-3 (Version None)
Quarter: 2005Q2

REPORT INFORMATION
  Report Type: 
  Country: None (occurrence: None)
  Receive Date: 20050531
  Receipt Date: 20020819
  Transmission Date: 20051028
  Serious: Yes (Death, Hospitalization)
  Sender: FDA-Public Use
  Company Number: PHRM2002FR02080

PATIENT
  Age: 33 Year
  Sex: Female

DRUGS (1)
  1. SYNTOCINON [Suspect]
     Indication: INDUCED LABOUR
     Dosage: 0.5 ML, QN
     Route: 042
     Dates: start: 20000820, end: 20000820

REACTIONS (12)
  - AMNIOTIC FLUID EMBOLUS [None]
  - BRADYCARDIA FOETAL [None]
  - CYANOSIS [None]
  - DISSEMINATED INTRAVASCULAR COAGULATION [None]
  - DRUG EXPOSURE DURING PREGNANCY [None]
  - FOETAL DISTRESS SYNDROME [None]
  - HYSTERECTOMY [None]
  - LOSS OF CONSCIOUSNESS [None]
  - OVERDOSE [None]
  - RESPIRATORY DISTRESS [None]
  - UTERINE HAEMORRHAGE [None]
  - UTERINE HYPERTONUS [None]
